FAERS Safety Report 4520410-1 (Version None)
Quarter: 2004Q4

REPORT INFORMATION
  Report Type: 
  Country: None (occurrence: None)
  Receive Date: 20041203
  Receipt Date: 20041124
  Transmission Date: 20050328
  Serious: Yes (Hospitalization)
  Sender: FDA-Public Use
  Company Number: 2004097842

PATIENT
  Age: 2 Year
  Sex: Female
  Weight: 6 kg

DRUGS (3)
  1. NEURONTIN (NEURONTIN) [Suspect]
     Indication: ILL-DEFINED DISORDER
  2. PHENOBARBITAL TAB [Suspect]
     Indication: ILL-DEFINED DISORDER
  3. CLOBAZAM (CLOBAZAM) [Suspect]
     Indication: ILL-DEFINED DISORDER

REACTIONS (6)
  - BODY HEIGHT BELOW NORMAL [None]
  - DRUG EXPOSURE DURING PREGNANCY [None]
  - LATE DEVELOPER [None]
  - PREMATURE BABY [None]
  - SMALL FOR DATES BABY [None]
  - WEIGHT GAIN POOR [None]
